FAERS Safety Report 4686548-3 (Version None)
Quarter: 2005Q2

REPORT INFORMATION
  Report Type: 
  Country: None (occurrence: None)
  Receive Date: 20050607
  Receipt Date: 20050524
  Transmission Date: 20051028
  Serious: No
  Sender: FDA-Public Use
  Company Number: 2005079943

PATIENT
  Sex: Female

DRUGS (4)
  1. PROVERA [Suspect]
     Indication: HORMONE REPLACEMENT THERAPY
     Dates: start: 19910101, end: 20030101
  2. ORTHO-PREFEST (ESTRADIOL, NORGESTIMATE) [Suspect]
     Indication: HORMONE REPLACEMENT THERAPY
     Dates: start: 19910101, end: 20030101
  3. CONJUGATED ESTROGENS [Suspect]
     Indication: HORMONE REPLACEMENT THERAPY
     Dates: start: 19910101
  4. PROVELLA-14 (ESTROGENS CONJUGATED, MEDROXYPROGESTERONE ACETATE) [Suspect]
     Indication: HORMONE REPLACEMENT THERAPY
     Dates: start: 19910101, end: 20030101

REACTIONS (1)
  - BREAST CANCER FEMALE [None]
